FAERS Safety Report 7429372-0 (Version None)
Quarter: 2011Q2

REPORT INFORMATION
  Report Type: 
  Country: None (occurrence: None)
  Receive Date: 20110414
  Receipt Date: 20110331
  Transmission Date: 20111010
  Serious: Yes (Death)
  Sender: FDA-Public Use
  Company Number: 030417

PATIENT
  Sex: Male

DRUGS (3)
  1. TOPIRAMATE [Concomitant]
  2. LACOSAMIDE [Suspect]
  3. KEPPRA [Suspect]

REACTIONS (1)
  - GLIOBLASTOMA [None]
